FAERS Safety Report 5842681-1 (Version None)
Quarter: 2008Q3

REPORT INFORMATION
  Report Type: 
  Country: None (occurrence: None)
  Receive Date: 20080808
  Receipt Date: 20080728
  Transmission Date: 20090109
  Serious: Yes (Other)
  Sender: FDA-Public Use
  Company Number: 236752J08USA

PATIENT
  Age: 31 Year
  Sex: Male
  Weight: 115.6672 kg

DRUGS (2)
  1. REBIF [Suspect]
     Indication: MULTIPLE SCLEROSIS
     Dosage: 22 MCG, 3 IN 1 WEEKS, SUBCUTANEOUS
     Route: 058
     Dates: start: 20080626
  2. LEVOTHYROXINE (LEVOTHYROXINE/00068001/) [Concomitant]

REACTIONS (3)
  - DRUG INEFFECTIVE [None]
  - MUSCLE STRAIN [None]
  - THROMBOPHLEBITIS SUPERFICIAL [None]
